FAERS Safety Report 5352488-X (Version None)
Quarter: 2007Q2

REPORT INFORMATION
  Report Type: 
  Country: None (occurrence: None)
  Receive Date: 20070611
  Receipt Date: 20070604
  Transmission Date: 20071010
  Serious: Yes (Hospitalization)
  Sender: FDA-Public Use
  Company Number: B0474435A

PATIENT
  Age: 55 Year
  Sex: Male

DRUGS (6)
  1. ABACAVIR [Suspect]
     Indication: HIV INFECTION
     Dosage: 300MG TWICE PER DAY
     Route: 048
     Dates: start: 20070315, end: 20070430
  2. AMOXICILLIN [Concomitant]
     Indication: URINARY TRACT INFECTION
     Dosage: 250MG THREE TIMES PER DAY
     Route: 048
     Dates: start: 20070423, end: 20070426
  3. LAMIVUDINE [Concomitant]
     Indication: HIV INFECTION
     Dosage: 150MG TWICE PER DAY
     Route: 048
     Dates: start: 20020401
  4. NEVIRAPINE [Concomitant]
     Indication: HIV INFECTION
     Dosage: 200MG TWICE PER DAY
     Route: 048
     Dates: start: 20030301
  5. TENOFOVIR DISOPROXIL FUMARATE [Concomitant]
     Indication: HIV INFECTION
     Dates: start: 20051201, end: 20070401
  6. WARFARIN SODIUM [Concomitant]
     Indication: PULMONARY EMBOLISM
     Route: 048
     Dates: start: 20020401

REACTIONS (4)
  - ABDOMINAL PAIN [None]
  - DRUG HYPERSENSITIVITY [None]
  - HEPATITIS [None]
  - JAUNDICE [None]
